FAERS Safety Report 14572855 (Version 1)
Quarter: 2018Q1

REPORT INFORMATION
  Report Type: Spontaneous
  Country: US (occurrence: US)
  Receive Date: 20180222
  Receipt Date: 20180222
  Transmission Date: 20180509
  Serious: No
  Sender: FDA-Public Use
  Company Number: None

PATIENT
  Sex: Female

DRUGS (2)
  1. OXYBUTYNIN ER [Suspect]
     Active Substance: OXYBUTYNIN
  2. DETROL LA [Suspect]
     Active Substance: TOLTERODINE TARTRATE

REACTIONS (1)
  - Drug ineffective [None]
